FAERS Safety Report 9827936 (Version 1)
Quarter: 2014Q1

REPORT INFORMATION
  Report Type: Report from Study
  Country: CA (occurrence: CA)
  Receive Date: 20140117
  Receipt Date: 20140117
  Transmission Date: 20141002
  Serious: Yes (Other)
  Sender: FDA-Public Use
  Company Number: CA-ABBVIE-14P-028-1190246-00

PATIENT
  Age: 46 Year
  Sex: Female
  Weight: 80.36 kg

DRUGS (2)
  1. HUMIRA [Suspect]
     Indication: PSORIASIS
     Route: 058
     Dates: start: 2008, end: 201312
  2. HUMIRA [Suspect]
     Route: 058
     Dates: start: 20140108

REACTIONS (2)
  - Tooth disorder [Not Recovered/Not Resolved]
  - Gingivitis [Recovered/Resolved]
